FAERS Safety Report 14020051 (Version 1)
Quarter: 2017Q3

REPORT INFORMATION
  Report Type: Spontaneous
  Country: US (occurrence: US)
  Receive Date: 20170928
  Receipt Date: 20170928
  Transmission Date: 20171128
  Serious: No
  Sender: FDA-Public Use
  Company Number: US-ALLERGAN-1668947US

PATIENT
  Age: 77 Year
  Sex: Male

DRUGS (5)
  1. RECTIV [Suspect]
     Active Substance: NITROGLYCERIN
     Indication: ANAL FISSURE
     Dosage: HALF INCH
     Route: 054
     Dates: start: 20160912, end: 20160912
  2. TAMBOCOR [Concomitant]
     Active Substance: FLECAINIDE ACETATE
     Indication: ATRIAL FIBRILLATION
  3. ALLOPURINOL. [Concomitant]
     Active Substance: ALLOPURINOL
     Indication: GOUT
  4. ATORVASTATIN [Concomitant]
     Active Substance: ATORVASTATIN
     Indication: BLOOD CHOLESTEROL INCREASED
  5. ASPIRIN. [Concomitant]
     Active Substance: ASPIRIN
     Indication: PRODUCT USED FOR UNKNOWN INDICATION

REACTIONS (5)
  - Heart rate irregular [Recovered/Resolved]
  - Drug prescribing error [Unknown]
  - Drug administration error [Unknown]
  - Headache [Recovered/Resolved]
  - Flushing [Recovered/Resolved]

NARRATIVE: CASE EVENT DATE: 20160912
